FAERS Safety Report 5479082-4 (Version None)
Quarter: 2007Q4

REPORT INFORMATION
  Report Type: 
  Country: None (occurrence: None)
  Receive Date: 20071002
  Receipt Date: 20070917
  Transmission Date: 20080405
  Serious: Yes (Hospitalization, Other)
  Sender: FDA-Public Use
  Company Number: 2007AD000087

PATIENT
  Age: 14 Year
  Sex: Female

DRUGS (2)
  1. CEPHALEXIN [Suspect]
     Indication: ARTHROPOD BITE
  2. DAPSONE [Suspect]
     Indication: ARTHROPOD BITE

REACTIONS (6)
  - CYANOSIS [None]
  - HEADACHE [None]
  - METHAEMOGLOBINAEMIA [None]
  - NOSOCOMIAL INFECTION [None]
  - OXYGEN SATURATION DECREASED [None]
  - STAPHYLOCOCCAL INFECTION [None]
